FAERS Safety Report 8373098-6 (Version None)
Quarter: 2012Q2

REPORT INFORMATION
  Report Type: 
  Country: None (occurrence: None)
  Receive Date: 20120521
  Receipt Date: 20120514
  Transmission Date: 20120825
  Serious: Yes (Hospitalization)
  Sender: FDA-Public Use
  Company Number: US-PFIZER INC-2012115620

PATIENT
  Sex: Male
  Weight: 75 kg

DRUGS (3)
  1. LANTUS [Suspect]
     Indication: BLOOD GLUCOSE ABNORMAL
     Dosage: 35 IU, UNK
  2. NOVOLOG [Suspect]
     Indication: BLOOD GLUCOSE ABNORMAL
     Dosage: 8 IU, 3X/DAY
  3. NEURONTIN [Suspect]
     Indication: NEURALGIA
     Dosage: 300 MG, 3X/DAY

REACTIONS (3)
  - PAIN [None]
  - BLOOD PRESSURE ABNORMAL [None]
  - BLOOD GLUCOSE INCREASED [None]
